FAERS Safety Report 11266762 (Version 1)
Quarter: 2015Q3

REPORT INFORMATION
  Report Type: Spontaneous
  Country: US (occurrence: US)
  Receive Date: 20150713
  Receipt Date: 20150713
  Transmission Date: 20151125
  Serious: No
  Sender: FDA-Public Use
  Company Number: US-DSJP-DSU-2015-113760

PATIENT

DRUGS (2)
  1. BENICAR HCT [Suspect]
     Active Substance: HYDROCHLOROTHIAZIDE\OLMESARTAN MEDOXOMIL
     Dosage: HALF TABLET OF 40/12.5 MG, PRN
     Route: 048
     Dates: start: 201504
  2. BENICAR HCT [Suspect]
     Active Substance: HYDROCHLOROTHIAZIDE\OLMESARTAN MEDOXOMIL
     Indication: HYPERTENSION
     Dosage: 40/12.5 MG, QD
     Route: 048
     Dates: start: 201404, end: 201504

REACTIONS (14)
  - Dizziness [Unknown]
  - Urine odour abnormal [Unknown]
  - Arthralgia [Unknown]
  - Weight decreased [Unknown]
  - Skin wrinkling [Unknown]
  - Drug administration error [Not Recovered/Not Resolved]
  - Vision blurred [Unknown]
  - Myalgia [Unknown]
  - Pollakiuria [Unknown]
  - Dyspnoea [Unknown]
  - Fatigue [Unknown]
  - Musculoskeletal pain [Unknown]
  - Blood pressure fluctuation [Unknown]
  - Fall [Unknown]

NARRATIVE: CASE EVENT DATE: 201404
